FAERS Safety Report 7210455-5 (Version None)
Quarter: 2010Q4

REPORT INFORMATION
  Report Type: 
  Country: None (occurrence: None)
  Receive Date: 20101220
  Receipt Date: 20101207
  Transmission Date: 20110411
  Serious: Yes (Hospitalization)
  Sender: FDA-Public Use
  Company Number: 2010PROUSA00136

PATIENT
  Age: 54 Year
  Sex: Male
  Weight: 131 kg

DRUGS (9)
  1. PROVENGE [Suspect]
     Indication: PROSTATE CANCER METASTATIC
     Dosage: 250 ML, SINGLE, INTRAVENOUS, 250 ML, SINGLE, INTRAVENOUS, 250 ML, SINGLE, INTRAVENOUS
     Route: 042
     Dates: start: 20100923, end: 20100923
  2. PROVENGE [Suspect]
     Indication: PROSTATE CANCER METASTATIC
     Dosage: 250 ML, SINGLE, INTRAVENOUS, 250 ML, SINGLE, INTRAVENOUS, 250 ML, SINGLE, INTRAVENOUS
     Route: 042
     Dates: start: 20101007, end: 20101007
  3. PROVENGE [Suspect]
     Indication: PROSTATE CANCER METASTATIC
     Dosage: 250 ML, SINGLE, INTRAVENOUS, 250 ML, SINGLE, INTRAVENOUS, 250 ML, SINGLE, INTRAVENOUS
     Route: 042
     Dates: start: 20101115, end: 20101115
  4. PROVENGE [Suspect]
  5. PROVENGE [Suspect]
  6. TYLENOL /00020001/ (PARACETAMOL) [Concomitant]
  7. FLOMAX /00889901/ (MORNIFLUMATE) [Concomitant]
  8. DETROL LA [Concomitant]
  9. VICODIN [Concomitant]

REACTIONS (2)
  - PNEUMONIA [None]
  - VENOUS THROMBOSIS [None]
